FAERS Safety Report 13330058 (Version 2)
Quarter: 2017Q1

REPORT INFORMATION
  Report Type: Spontaneous
  Country: US (occurrence: US)
  Receive Date: 20170313
  Receipt Date: 20170328
  Transmission Date: 20170428
  Serious: Yes (Hospitalization)
  Sender: FDA-Public Use
  Company Number: US-PFIZER INC-2017107039

PATIENT
  Age: 64 Year
  Sex: Female

DRUGS (1)
  1. IBRANCE [Suspect]
     Active Substance: PALBOCICLIB
     Dosage: 100 MG, CYCLIC [ONCE A DAY (QD) FOR 21DAYS THEN 7 DAYS OFF]
     Route: 048
     Dates: start: 20170119, end: 20170317

REACTIONS (3)
  - Thrombosis [Unknown]
  - Haemoglobin decreased [Unknown]
  - Peripheral swelling [Unknown]
